FAERS Safety Report 9242499 (Version 6)
Quarter: 2013Q3

REPORT INFORMATION
  Report Type: Spontaneous
  Country: NO (occurrence: NO)
  Receive Date: 20130419
  Receipt Date: 20130913
  Transmission Date: 20140515
  Serious: Yes (Other)
  Sender: FDA-Public Use
  Company Number: NO-PFIZER INC-2013119314

PATIENT
  Age: 44 Year
  Sex: Female

DRUGS (9)
  1. ZIPRASIDONE HCL [Suspect]
     Indication: SCHIZOAFFECTIVE DISORDER
     Dosage: UNK
  2. QUETIAPINE FUMARATE [Suspect]
     Indication: SCHIZOAFFECTIVE DISORDER
     Dosage: 1800 MG, A DAY
  3. QUETIAPINE FUMARATE [Suspect]
     Dosage: 1600 MG A DAY
  4. CLOZAPINE [Suspect]
     Indication: SCHIZOAFFECTIVE DISORDER
     Dosage: UNK
  5. LITHIUM [Suspect]
     Indication: SCHIZOAFFECTIVE DISORDER
     Dosage: UNK
  6. CHLORPROTIXEN [Concomitant]
     Indication: SCHIZOAFFECTIVE DISORDER
     Dosage: 25 MG X2
  7. LORAZEPAM [Concomitant]
     Indication: SCHIZOAFFECTIVE DISORDER
     Dosage: 0.5 MG + 1 MG/DAY
  8. ZOPICLONE [Concomitant]
     Indication: SCHIZOAFFECTIVE DISORDER
     Dosage: 7.5 MG, UNK
  9. ALIMEMAZINE [Concomitant]
     Indication: SCHIZOAFFECTIVE DISORDER
     Dosage: 20 MG, UNK

REACTIONS (4)
  - Agranulocytosis [Unknown]
  - Neuroleptic malignant syndrome [Unknown]
  - Drug level increased [Unknown]
  - Drug ineffective [Unknown]
